FAERS Safety Report 4266172-7 (Version None)
Quarter: 2004Q1

REPORT INFORMATION
  Report Type: 
  Country: None (occurrence: None)
  Receive Date: 20040106
  Receipt Date: 20031010
  Transmission Date: 20041129
  Serious: Yes (Life-Threatening, Hospitalization, Other)
  Sender: FDA-Public Use
  Company Number: KII-2003-0006631

PATIENT
  Age: 17 Year
  Sex: Female

DRUGS (4)
  1. OXYCONTIN [Suspect]
  2. TETRAHYDROCANNABINOL (TETRAHYDROCANNABINOL) [Suspect]
  3. AMPHETAMINE SULFATE TAB [Suspect]
  4. COCAINE (COCAINE) [Concomitant]

REACTIONS (18)
  - ASCITES [None]
  - BLOOD CREATINE PHOSPHOKINASE INCREASED [None]
  - BLOOD CREATININE INCREASED [None]
  - BLOOD PH DECREASED [None]
  - BLOOD SODIUM INCREASED [None]
  - CARDIO-RESPIRATORY ARREST [None]
  - COAGULOPATHY [None]
  - COMA [None]
  - CONVULSION [None]
  - CROSS SENSITIVITY REACTION [None]
  - DRUG SCREEN POSITIVE [None]
  - HEAD INJURY [None]
  - HYPOXIC ENCEPHALOPATHY [None]
  - INTENTIONAL MISUSE [None]
  - MYDRIASIS [None]
  - OEDEMA [None]
  - PUPIL FIXED [None]
  - SKIN LACERATION [None]
